FAERS Safety Report 21138162 (Version 6)
Quarter: 2022Q3

REPORT INFORMATION
  Report Type: Report from Study
  Country: BR (occurrence: BR)
  Receive Date: 20220727
  Receipt Date: 20220919
  Transmission Date: 20221026
  Serious: Yes (Other)
  Sender: FDA-Public Use
  Company Number: BR-JNJFOC-20220734638

PATIENT
  Age: 49 Year
  Sex: Female

DRUGS (4)
  1. SPRAVATO [Suspect]
     Active Substance: ESKETAMINE
     Indication: Major depression
     Dates: start: 20220603, end: 20220703
  2. OLANZAPINE [Concomitant]
     Active Substance: OLANZAPINE
  3. ALPRAZOLAM [Concomitant]
     Active Substance: ALPRAZOLAM
  4. LORAZEPAM [Concomitant]
     Active Substance: LORAZEPAM
     Route: 065

REACTIONS (11)
  - Bipolar disorder [Recovering/Resolving]
  - Major depression [Recovered/Resolved]
  - Fluid retention [Unknown]
  - Hypoacusis [Unknown]
  - Weight fluctuation [Unknown]
  - Insomnia [Unknown]
  - Drug ineffective [Unknown]
  - Vomiting [Unknown]
  - Tremor [Unknown]
  - Anxiety [Unknown]
  - Feeling abnormal [Unknown]

NARRATIVE: CASE EVENT DATE: 20220101
